FAERS Safety Report 5409317-5 (Version None)
Quarter: 2007Q3

REPORT INFORMATION
  Report Type: 
  Country: None (occurrence: None)
  Receive Date: 20070807
  Receipt Date: 20070723
  Transmission Date: 20080115
  Serious: Yes (Hospitalization)
  Sender: FDA-Public Use
  Company Number: 2007JP003429

PATIENT
  Age: 60 Year
  Sex: Male

DRUGS (3)
  1. FUNGUARD(MICAFUNGIN) INJECTION [Suspect]
     Indication: BRONCHOPULMONARY ASPERGILLOSIS
     Dosage: 150 MG/D, IV DRIP
     Route: 041
     Dates: start: 20070613, end: 20070705
  2. FINIBAX(DORIPENEM HYDRATE) INJECTION [Suspect]
     Dosage: 0.5 MG, IV DRIP
     Route: 041
     Dates: start: 20070613, end: 20070705
  3. ITRIZOLE(ITRACONAZOLE) PER ORAL NOS [Suspect]
     Dosage: 200 MG/D, ORAL
     Route: 048
     Dates: start: 20070705

REACTIONS (3)
  - EOSINOPHIL COUNT INCREASED [None]
  - NEUTROPHIL COUNT DECREASED [None]
  - WHITE BLOOD CELL COUNT DECREASED [None]
